FAERS Safety Report 9536144 (Version 5)
Quarter: 2015Q4

REPORT INFORMATION
  Report Type: Report from Study
  Country: US (occurrence: US)
  Receive Date: 20130919
  Receipt Date: 20151013
  Transmission Date: 20160305
  Serious: Yes (Hospitalization, Other)
  Sender: FDA-Public Use
  Company Number: US-ALEXION PHARMACEUTICALS INC.-A201302253

PATIENT

DRUGS (1)
  1. SOLIRIS [Suspect]
     Active Substance: ECULIZUMAB
     Indication: HAEMOLYTIC URAEMIC SYNDROME
     Dosage: UNK
     Route: 042

REACTIONS (6)
  - Plasmapheresis [Unknown]
  - Haemodialysis [Unknown]
  - Klebsiella infection [Unknown]
  - Complications of transplanted kidney [Unknown]
  - Unevaluable event [Unknown]
  - Pyrexia [Unknown]

NARRATIVE: CASE EVENT DATE: 20150824
